FAERS Safety Report 15410772 (Version 1)
Quarter: 2018Q3

REPORT INFORMATION
  Report Type: Spontaneous
  Country: US (occurrence: US)
  Receive Date: 20180919
  Receipt Date: 20180919
  Transmission Date: 20181010
  Serious: No
  Sender: FDA-Public Use
  Company Number: None

PATIENT
  Age: 36 Year
  Sex: Male
  Weight: 99 kg

DRUGS (6)
  1. PREDNISONE. [Concomitant]
     Active Substance: PREDNISONE
  2. METOPROLOL. [Concomitant]
     Active Substance: METOPROLOL
  3. VALSARTAN 80 MG TABLET [Suspect]
     Active Substance: VALSARTAN
     Indication: BLOOD PRESSURE MEASUREMENT
     Dosage: ?          QUANTITY:1 TABLET(S);?
     Route: 048
  4. MYCOPHENOLIC ACID. [Concomitant]
     Active Substance: MYCOPHENOLIC ACID
  5. TACROLIMUS. [Concomitant]
     Active Substance: TACROLIMUS
  6. TYLENOL [Concomitant]
     Active Substance: ACETAMINOPHEN

REACTIONS (9)
  - Gastric disorder [None]
  - Headache [None]
  - Vomiting [None]
  - Dizziness [None]
  - Product quality issue [None]
  - Product use issue [None]
  - Nausea [None]
  - Discomfort [None]
  - Neoplasm skin [None]

NARRATIVE: CASE EVENT DATE: 20171101
